FAERS Safety Report 16388685 (Version 1)
Quarter: 2019Q3

REPORT INFORMATION
  Report Type: Spontaneous
  Country: US (occurrence: US)
  Receive Date: 20190602
  Receipt Date: 20190602
  Transmission Date: 20191004
  Serious: No
  Sender: FDA-Public Use
  Company Number: None

PATIENT
  Age: 50 Year
  Sex: Female
  Weight: 96.75 kg

DRUGS (22)
  1. ATIVAN [Concomitant]
     Active Substance: LORAZEPAM
  2. IMODIUM [Concomitant]
     Active Substance: LOPERAMIDE HYDROCHLORIDE
  3. NORCO [Concomitant]
     Active Substance: ACETAMINOPHEN\HYDROCODONE BITARTRATE
  4. XTAMPZA [Suspect]
     Active Substance: OXYCODONE
     Indication: PAIN
     Dosage: ?          QUANTITY:1 CAPSULE(S);?
     Route: 048
     Dates: start: 20190528, end: 20190602
  5. BACLOFEN. [Concomitant]
     Active Substance: BACLOFEN
  6. ATORVASTATIN [Concomitant]
     Active Substance: ATORVASTATIN
  7. NOVOLOG [Concomitant]
     Active Substance: INSULIN ASPART
  8. ZOLOFT [Concomitant]
     Active Substance: SERTRALINE HYDROCHLORIDE
  9. EPIPEN [Concomitant]
     Active Substance: EPINEPHRINE
  10. BENADRYL [Concomitant]
     Active Substance: DIPHENHYDRAMINE HYDROCHLORIDE
  11. LEVOTHYROXINE. [Concomitant]
     Active Substance: LEVOTHYROXINE
  12. VITAMIN D [Concomitant]
     Active Substance: VITAMIN D NOS
  13. METFORMIN [Concomitant]
     Active Substance: METFORMIN HYDROCHLORIDE
  14. DEPO-PROVERA [Concomitant]
     Active Substance: MEDROXYPROGESTERONE ACETATE
  15. MECLAZINE [Concomitant]
  16. NEURONTIN [Concomitant]
     Active Substance: GABAPENTIN
  17. DEPAKOTE [Concomitant]
     Active Substance: DIVALPROEX SODIUM
  18. FLEXERIL [Concomitant]
     Active Substance: CYCLOBENZAPRINE HYDROCHLORIDE
  19. TUJEO [Concomitant]
  20. COLESTIPOL [Concomitant]
     Active Substance: COLESTIPOL
  21. FIOICET [Concomitant]
  22. ADVIL [Concomitant]
     Active Substance: IBUPROFEN

REACTIONS (7)
  - Nausea [None]
  - Chest pain [None]
  - Insomnia [None]
  - Agitation [None]
  - Asthma [None]
  - Anxiety [None]
  - Abdominal pain upper [None]

NARRATIVE: CASE EVENT DATE: 20190601
